FAERS Safety Report 4446027-5 (Version None)
Quarter: 2004Q3

REPORT INFORMATION
  Report Type: 
  Country: None (occurrence: None)
  Receive Date: 20040910
  Receipt Date: 20040831
  Transmission Date: 20050211
  Serious: Yes (Congenital Anomaly)
  Sender: FDA-Public Use
  Company Number: GB-GLAXOSMITHKLINE-B0321817B

PATIENT
  Sex: Female

DRUGS (6)
  1. ZOVIRAX [Suspect]
     Dosage: 800MG FIVE TIMES PER DAY
     Dates: start: 20040117
  2. VALPROIC ACID [Concomitant]
     Indication: EPILEPSY
     Dosage: 1MG PER DAY
  3. FOLIC ACID [Concomitant]
     Dosage: 5MG PER DAY
     Dates: end: 20031219
  4. ZOMIG [Concomitant]
     Indication: MIGRAINE
     Dosage: 6UNIT PER DAY
     Dates: end: 20030618
  5. PHYTONADIONE [Concomitant]
     Dosage: 10MG PER DAY
     Dates: end: 20040305
  6. GAMMAGLOBULINE [Concomitant]
     Dates: start: 20040107

REACTIONS (3)
  - APGAR SCORE LOW [None]
  - DRUG EXPOSURE DURING PREGNANCY [None]
  - PILONIDAL CYST CONGENITAL [None]
